FAERS Safety Report 8927443 (Version 1)
Quarter: 2012Q4

REPORT INFORMATION
  Report Type: Report from Study
  Country: JP (occurrence: JP)
  Receive Date: 20121127
  Receipt Date: 20121127
  Transmission Date: 20130627
  Serious: Yes (Death)
  Sender: FDA-Public Use
  Company Number: JP-BAYER-2012-123841

PATIENT

DRUGS (1)
  1. BAYASPIRIN [Suspect]
     Indication: ANTICOAGULANT THERAPY
     Route: 048

REACTIONS (1)
  - Post procedural haemorrhage [Fatal]
